FAERS Safety Report 4891236-4 (Version None)
Quarter: 2006Q1

REPORT INFORMATION
  Report Type: 
  Country: None (occurrence: None)
  Receive Date: 20060123
  Receipt Date: 20060106
  Transmission Date: 20060701
  Serious: Yes (Hospitalization)
  Sender: FDA-Public Use
  Company Number: 104945

PATIENT
  Age: 86 Year
  Sex: Female

DRUGS (12)
  1. DAIVONEX              (CALCIPOTRIOL) [Suspect]
     Indication: DERMATITIS EXFOLIATIVE
     Dosage: 10  + 5 G TO
     Route: 061
     Dates: start: 20051011, end: 20051104
  2. DAIVONEX              (CALCIPOTRIOL) [Suspect]
     Indication: PITYRIASIS RUBRA PILARIS
     Dosage: 10  + 5 G TO
     Route: 061
     Dates: start: 20051011, end: 20051104
  3. DAIVONEX              (CALCIPOTRIOL) [Suspect]
     Indication: DERMATITIS EXFOLIATIVE
     Dosage: 10  + 5 G TO
     Route: 061
     Dates: start: 20051121
  4. DAIVONEX              (CALCIPOTRIOL) [Suspect]
     Indication: PITYRIASIS RUBRA PILARIS
     Dosage: 10  + 5 G TO
     Route: 061
     Dates: start: 20051121
  5. VERAPAMIL HYDROCHLORIDE [Concomitant]
  6. ISOSORBIDE MONONITRATE [Concomitant]
  7. ASPIRIN [Concomitant]
  8. MUCODYNE (CARBOCISTERINE) [Concomitant]
  9. MAGTACT U (ALUMINIUM HYDROXIDE, MAGNESIUM HYDROXIDE [Concomitant]
  10. LANSOPRAZOLE [Concomitant]
  11. TIGASON (ETRETINATE) [Concomitant]
  12. SAHINE (RETINOL) [Concomitant]

REACTIONS (9)
  - ANOREXIA [None]
  - CONDITION AGGRAVATED [None]
  - DEHYDRATION [None]
  - ERYTHEMA [None]
  - HYPERCALCAEMIA [None]
  - RENAL FAILURE [None]
  - SKIN ATROPHY [None]
  - SKIN EXFOLIATION [None]
  - UNEVALUABLE EVENT [None]
